FAERS Safety Report 9391198 (Version 1)
Quarter: 2013Q3

REPORT INFORMATION
  Report Type: Spontaneous
  Country: GB (occurrence: GB)
  Receive Date: 20130709
  Receipt Date: 20130709
  Transmission Date: 20140515
  Serious: Yes (Other)
  Sender: FDA-Public Use
  Company Number: GB-PFIZER INC-2013196588

PATIENT
  Age: 26 Year
  Sex: Male
  Weight: 65.31 kg

DRUGS (4)
  1. DOXYCYCLINE MONOHYDRATE [Suspect]
     Indication: PELVIC PAIN
     Dosage: 200 MG, UNK
     Route: 048
     Dates: start: 20130612, end: 20130619
  2. OMEPRAZOLE [Concomitant]
  3. VENTOLIN [Concomitant]
  4. PINEXEL PROLONGED RELEASE [Concomitant]

REACTIONS (1)
  - Tinnitus [Not Recovered/Not Resolved]
